FAERS Safety Report 5127862-7 (Version None)
Quarter: 2006Q4

REPORT INFORMATION
  Report Type: 
  Country: None (occurrence: None)
  Receive Date: 20061016
  Receipt Date: 20061003
  Transmission Date: 20070319
  Serious: No
  Sender: FDA-Public Use
  Company Number: 2006UW19201

PATIENT
  Sex: Female

DRUGS (1)
  1. ZOLADEX [Suspect]
     Route: 058

REACTIONS (3)
  - INJECTION SITE BRUISING [None]
  - INJECTION SITE HAEMORRHAGE [None]
  - MEDICAL DEVICE COMPLICATION [None]
